FAERS Safety Report 9659331 (Version 1)
Quarter: 2013Q4

REPORT INFORMATION
  Report Type: Spontaneous
  Country: KR (occurrence: KR)
  Receive Date: 20131031
  Receipt Date: 20131031
  Transmission Date: 20140711
  Serious: Yes (Death)
  Sender: FDA-Public Use
  Company Number: KR-JNJFOC-20131017364

PATIENT
  Age: 64 Year
  Sex: Female

DRUGS (3)
  1. FINIBAX [Suspect]
     Indication: PNEUMONIA
     Dosage: 0.25 GRAMS
     Route: 041
     Dates: start: 20130730, end: 20130818
  2. COLISTIN [Concomitant]
     Indication: PNEUMONIA
     Route: 065
     Dates: start: 20130724, end: 20130817
  3. TARGOCID [Concomitant]
     Indication: PNEUMONIA
     Route: 065
     Dates: start: 20130730, end: 20130817

REACTIONS (1)
  - Lung neoplasm malignant [Fatal]
